FAERS Safety Report 8157287-1 (Version None)
Quarter: 2012Q1

REPORT INFORMATION
  Report Type: 
  Country: None (occurrence: None)
  Receive Date: 20120222
  Receipt Date: 20120210
  Transmission Date: 20120608
  Serious: Yes (Other)
  Sender: FDA-Public Use
  Company Number: JP-ROCHE-1039990

PATIENT
  Sex: Male

DRUGS (2)
  1. TAMIFLU [Suspect]
     Indication: PRODUCT USED FOR UNKNOWN INDICATION
     Dosage: DOSAGE IS UNCERTAIN. 1 DOSE.
     Route: 048
     Dates: start: 20120210, end: 20120210
  2. MOTILIUM [Concomitant]
     Dosage: DOSAGE IS UNCERTAIN.
     Route: 054
     Dates: start: 20120210, end: 20120210

REACTIONS (1)
  - ABNORMAL BEHAVIOUR [None]
